FAERS Safety Report 7314816-5 (Version None)
Quarter: 2011Q1

REPORT INFORMATION
  Report Type: 
  Country: None (occurrence: None)
  Receive Date: 20110225
  Receipt Date: 20110118
  Transmission Date: 20110831
  Serious: No
  Sender: FDA-Public Use
  Company Number: US-MYLANLABS-2010S1023290

PATIENT
  Age: 16 Year
  Sex: Male
  Weight: 72.58 kg

DRUGS (4)
  1. M.V.I. [Concomitant]
  2. AMNESTEEM [Suspect]
     Indication: ACNE
     Route: 048
     Dates: start: 20100401
  3. AMNESTEEM [Suspect]
     Route: 048
     Dates: end: 20100901
  4. CLARITIN /00917501/ [Concomitant]

REACTIONS (1)
  - DECREASED APPETITE [None]
